FAERS Safety Report 23799010 (Version 1)
Quarter: 2024Q2

REPORT INFORMATION
  Report Type: Spontaneous
  Country: US (occurrence: None)
  Receive Date: 20240427
  Receipt Date: 20240427
  Transmission Date: 20240715
  Serious: Yes (Hospitalization)
  Sender: FDA-Public Use
  Company Number: None

PATIENT
  Age: 79 Year
  Sex: Male
  Weight: 68.9 kg

DRUGS (1)
  1. WARFARIN SODIUM [Suspect]
     Active Substance: WARFARIN SODIUM
     Indication: Peripheral vascular disorder
     Dates: start: 20230215

REACTIONS (10)
  - Haematuria [None]
  - Groin pain [None]
  - Dyspnoea [None]
  - Haemorrhage [None]
  - Perineal pain [None]
  - Dysuria [None]
  - International normalised ratio increased [None]
  - Haemoglobin decreased [None]
  - Haematocrit decreased [None]
  - Red blood cell transfusion [None]

NARRATIVE: CASE EVENT DATE: 20230308
